FAERS Safety Report 21669180 (Version 2)
Quarter: 2022Q4

REPORT INFORMATION
  Report Type: Spontaneous
  Country: FR (occurrence: FR)
  Receive Date: 20221201
  Receipt Date: 20221209
  Transmission Date: 20230113
  Serious: Yes (Hospitalization, Other)
  Sender: FDA-Public Use
  Company Number: None

PATIENT
  Age: 71 Year
  Sex: Female
  Weight: 62.3 kg

DRUGS (8)
  1. MIANSERIN [Suspect]
     Active Substance: MIANSERIN
     Indication: Product used for unknown indication
     Dosage: 10 MILLIGRAM, QD
     Route: 048
     Dates: end: 20220221
  2. OLANZAPINE [Suspect]
     Active Substance: OLANZAPINE
     Indication: Product used for unknown indication
     Dosage: 10 MILLIGRAM, QD
     Route: 048
     Dates: end: 20220221
  3. CEFTRIAXONE [Suspect]
     Active Substance: CEFTRIAXONE
     Indication: Lung disorder
     Dosage: UNK
     Route: 042
     Dates: start: 20220106, end: 20220113
  4. CIPROFLOXACIN [Suspect]
     Active Substance: CIPROFLOXACIN
     Indication: Pneumonia aspiration
     Dosage: ROCEPHIN RELAY, ROUTE OF ADMINISTRATION
     Route: 065
     Dates: start: 202112, end: 202112
  5. CEFTRIAXONE [Suspect]
     Active Substance: CEFTRIAXONE
     Indication: Pneumonia aspiration
     Dosage: DOSAGE AND DURATION NOT SPECIFIED
     Route: 042
     Dates: start: 202112, end: 202112
  6. OXAZEPAM [Suspect]
     Active Substance: OXAZEPAM
     Indication: Product used for unknown indication
     Dosage: 10 MILLIGRAM, QD
     Route: 048
     Dates: end: 20220223
  7. METRONIDAZOLE [Suspect]
     Active Substance: METRONIDAZOLE
     Indication: Pneumonia aspiration
     Dosage: UNK
     Route: 065
     Dates: start: 202112, end: 202112
  8. METRONIDAZOLE [Suspect]
     Active Substance: METRONIDAZOLE
     Indication: Lung disorder
     Dosage: ROCEPHIN RELAY, DOSAGE AND ROUTE OF ADMINISTRATION
     Route: 065
     Dates: start: 20220106, end: 20220112

REACTIONS (2)
  - Clostridium difficile infection [Recovered/Resolved]
  - Somnolence [Recovered/Resolved]

NARRATIVE: CASE EVENT DATE: 20220124
